FAERS Safety Report 14948992 (Version 3)
Quarter: 2018Q2

REPORT INFORMATION
  Report Type: Spontaneous
  Country: BY (occurrence: BY)
  Receive Date: 20180529
  Receipt Date: 20180629
  Transmission Date: 20180711
  Serious: Yes (Death, Hospitalization, Other)
  Sender: FDA-Public Use
  Company Number: BY-PFIZER INC-2018216236

PATIENT
  Age: 58 Year
  Sex: Male
  Weight: 105 kg

DRUGS (2)
  1. TYGACIL [Suspect]
     Active Substance: TIGECYCLINE
     Dosage: UNK
  2. COLISTATE [Concomitant]
     Dosage: UNK

REACTIONS (3)
  - Meningitis [Recovering/Resolving]
  - Infection [Recovering/Resolving]
  - Sepsis [Fatal]
